FAERS Safety Report 8224999-0 (Version None)
Quarter: 2012Q1

REPORT INFORMATION
  Report Type: 
  Country: None (occurrence: None)
  Receive Date: 20120321
  Receipt Date: 20120301
  Transmission Date: 20120608
  Serious: No
  Sender: FDA-Public Use
  Company Number: JP-ROCHE-1050416

PATIENT
  Age: 4 Year
  Sex: Male
  Weight: 15 kg

DRUGS (4)
  1. ASVERIN [Concomitant]
     Indication: ASTHMA
     Dosage: DOSAGE IS UNCERTAIN.
     Route: 048
  2. MUCODYNE [Concomitant]
     Indication: ASTHMA
     Dosage: DOSAGE IS UNCERTAIN.
     Route: 048
  3. TAMIFLU [Suspect]
     Indication: INFLUENZA
     Dosage: DOSAGE IS UNCERTAIN.
     Route: 048
     Dates: start: 20120227
  4. TULOBUTEROL [Concomitant]
     Indication: ASTHMA
     Dosage: DOSAGE IS UNCERTAIN.
     Route: 062

REACTIONS (1)
  - OVERDOSE [None]
